FAERS Safety Report 8933069 (Version 2)
Quarter: 2013Q1

REPORT INFORMATION
  Report Type: Spontaneous
  Country: US (occurrence: US)
  Receive Date: 20121129
  Receipt Date: 20130108
  Transmission Date: 20140127
  Serious: No
  Sender: FDA-Public Use
  Company Number: US-BIOGENIDEC-2012BI054574

PATIENT
  Sex: Female

DRUGS (1)
  1. AVONEX [Suspect]
     Indication: MULTIPLE SCLEROSIS
     Route: 030
     Dates: start: 19981101

REACTIONS (12)
  - General physical health deterioration [Unknown]
  - Musculoskeletal disorder [Unknown]
  - Mobility decreased [Unknown]
  - Peroneal nerve palsy [Unknown]
  - Visual acuity reduced [Unknown]
  - Hypoacusis [Unknown]
  - Amnesia [Unknown]
  - Fall [Unknown]
  - Gait disturbance [Unknown]
  - Dizziness [Unknown]
  - Malaise [Unknown]
  - Multiple sclerosis relapse [Unknown]
